FAERS Safety Report 17456659 (Version 1)
Quarter: 2020Q1

REPORT INFORMATION
  Report Type: Spontaneous
  Country: US (occurrence: US)
  Receive Date: 20200225
  Receipt Date: 20200225
  Transmission Date: 20200409
  Serious: No
  Sender: FDA-Public Use
  Company Number: US-JNJFOC-20200201629

PATIENT
  Sex: Female
  Weight: 58.57 kg

DRUGS (1)
  1. WOMENS ROGAINE UNSCENTED [Suspect]
     Active Substance: MINOXIDIL
     Indication: ALOPECIA
     Dosage: HALF A CAPFUL ONCE A DAY?THE PRODUCT LAST ADMINISTERED ON 30/JAN/2020
     Route: 061

REACTIONS (1)
  - Alopecia [Not Recovered/Not Resolved]
